FAERS Safety Report 18041821 (Version 1)
Quarter: 2020Q3

REPORT INFORMATION
  Report Type: Spontaneous
  Country: FR (occurrence: FR)
  Receive Date: 20200720
  Receipt Date: 20200720
  Transmission Date: 20201103
  Serious: Yes (Hospitalization)
  Sender: FDA-Public Use
  Company Number: FR-TEVA-2020-FR-1800384

PATIENT
  Age: 45 Year
  Sex: Female
  Weight: 78.6 kg

DRUGS (5)
  1. BILASKA [Suspect]
     Active Substance: BILASTINE
     Indication: PRODUCT USED FOR UNKNOWN INDICATION
     Dosage: 20 MILLIGRAM
     Route: 048
     Dates: start: 20200616, end: 20200618
  2. AIROMIR [Suspect]
     Active Substance: ALBUTEROL SULFATE
     Indication: PRODUCT USED FOR UNKNOWN INDICATION
     Dosage: 2 DOSAGEFORM
     Route: 055
     Dates: start: 20200616, end: 20200618
  3. FORMOTEROL DIHYDRATE (FUMARATE DE) [Suspect]
     Active Substance: FORMOTEROL
     Indication: PRODUCT USED FOR UNKNOWN INDICATION
     Dosage: 4 DOSAGEFORM
     Route: 055
     Dates: start: 20200616, end: 20200618
  4. BUDESONIDE. [Suspect]
     Active Substance: BUDESONIDE
     Indication: PRODUCT USED FOR UNKNOWN INDICATION
     Dosage: 4 DOSAGEFORM
     Route: 055
     Dates: start: 20200616, end: 20200618
  5. CROMOPTIC [Suspect]
     Active Substance: CROMOLYN SODIUM
     Indication: OCULAR DISCOMFORT
     Route: 047
     Dates: start: 20200616, end: 20200618

REACTIONS (1)
  - Behaviour disorder [Recovered/Resolved]

NARRATIVE: CASE EVENT DATE: 20200618
